FAERS Safety Report 7857507 (Version 5)
Quarter: 2014Q2

REPORT INFORMATION
  Report Type: Report from Study
  Country: US (occurrence: US)
  Receive Date: 20110316
  Receipt Date: 20140508
  Transmission Date: 20141212
  Serious: Yes (Hospitalization)
  Sender: FDA-Public Use
  Company Number: US-ACTELION-A-NJ2011-45931

PATIENT
  Age: 62 Year
  Sex: Male

DRUGS (4)
  1. TRACLEER [Suspect]
     Indication: PULMONARY ARTERIAL HYPERTENSION
     Dosage: 125 MG, BID
     Route: 048
     Dates: end: 20121018
  2. TRACLEER [Suspect]
     Dosage: UNK
     Route: 048
  3. REVATIO [Concomitant]
  4. COUMADIN [Concomitant]

REACTIONS (7)
  - Atrial fibrillation [Unknown]
  - Cerebrovascular accident [Unknown]
  - Transient ischaemic attack [Unknown]
  - Blood pressure decreased [Unknown]
  - Syncope [Unknown]
  - Cardiac ablation [Recovering/Resolving]
  - Atrial flutter [Recovering/Resolving]
